FAERS Safety Report 8425994-9 (Version None)
Quarter: 2012Q2

REPORT INFORMATION
  Report Type: 
  Country: None (occurrence: None)
  Receive Date: 20120601
  Receipt Date: 20120523
  Transmission Date: 20120825
  Serious: Yes (Death, Hospitalization)
  Sender: FDA-Public Use
  Company Number: WAES 1205USA00607

PATIENT
  Age: 68 Year
  Sex: Male

DRUGS (9)
  1. WARFARIN SODIUM [Concomitant]
  2. ASPIRIN [Concomitant]
  3. METOPROLOL SUCCINATE [Concomitant]
  4. RAMIPRIL [Concomitant]
  5. HYDROCHLOROTHIAZIDE [Concomitant]
  6. IMIPRAMINE HCL [Concomitant]
  7. VYTORIN [Suspect]
     Indication: ACUTE CORONARY SYNDROME
     Dosage: 10-40 MG/DAILY PO
     Route: 048
     Dates: start: 20060517
  8. PLACEBO [Suspect]
     Indication: ACUTE CORONARY SYNDROME
     Dosage: PO
     Route: 048
     Dates: start: 20060517
  9. PLACEBO [Suspect]
     Indication: ACUTE CORONARY SYNDROME
     Dosage: PO
     Route: 048
     Dates: start: 20060517

REACTIONS (4)
  - GASTROINTESTINAL CARCINOMA [None]
  - HEPATIC NEOPLASM MALIGNANT [None]
  - BILE DUCT CANCER [None]
  - PNEUMONIA [None]
